FAERS Safety Report 5724759-6 (Version None)
Quarter: 2008Q2

REPORT INFORMATION
  Report Type: 
  Country: None (occurrence: None)
  Receive Date: 20080501
  Receipt Date: 20080421
  Transmission Date: 20081010
  Serious: Yes (Other)
  Sender: FDA-Public Use
  Company Number: FR-NOVOPROD-272579

PATIENT
  Sex: Male
  Weight: 59.4 kg

DRUGS (5)
  1. INSULATARD INNOLET HM(GE) [Suspect]
     Indication: INSULIN-REQUIRING TYPE 2 DIABETES MELLITUS
     Dosage: 23 UNK, QD
     Route: 058
     Dates: start: 20080126
  2. PLAVIX [Concomitant]
     Indication: PROPHYLAXIS
     Dosage: 75 MG, UNK
     Route: 048
     Dates: start: 20010901
  3. RAMIPRIL [Concomitant]
     Indication: HYPERTENSION
     Dosage: 1.25 MG, UNK
     Route: 048
     Dates: start: 20010901
  4. CRESTOR [Concomitant]
     Indication: DYSLIPIDAEMIA
     Dosage: 5 MG, UNK
     Route: 048
     Dates: start: 20070901
  5. CARVEDILOL [Concomitant]
     Indication: HYPERTENSION
     Dosage: 37.5 MG, QD
     Route: 048
     Dates: start: 20010901

REACTIONS (6)
  - BRADYCARDIA [None]
  - CAROTID ARTERY STENOSIS [None]
  - DIZZINESS [None]
  - FALL [None]
  - HIGH DENSITY LIPOPROTEIN DECREASED [None]
  - HYPOGLYCAEMIA [None]
